FAERS Safety Report 11835872 (Version 1)
Quarter: 2015Q4

REPORT INFORMATION
  Report Type: Spontaneous
  Country: US (occurrence: None)
  Receive Date: 20151214
  Receipt Date: 20151214
  Transmission Date: 20160305
  Serious: No
  Sender: FDA-Public Use
  Company Number: None

PATIENT
  Age: 30 Year
  Sex: Male
  Weight: 74.84 kg

DRUGS (5)
  1. CIPROFLOXACIN 250MG WW 927 [Suspect]
     Active Substance: CIPROFLOXACIN
     Indication: PNEUMONIA
     Dosage: 2 PILLS
     Route: 048
     Dates: start: 20151211, end: 20151212
  2. NAPROXEN. [Concomitant]
     Active Substance: NAPROXEN
  3. TRAMADOL. [Concomitant]
     Active Substance: TRAMADOL
  4. GABAPENTIN. [Concomitant]
     Active Substance: GABAPENTIN
  5. MULTIVITAMIN [Concomitant]
     Active Substance: VITAMINS

REACTIONS (1)
  - Hallucination, visual [None]

NARRATIVE: CASE EVENT DATE: 20151213
